FAERS Safety Report 4839144-9 (Version None)
Quarter: 2005Q4

REPORT INFORMATION
  Report Type: 
  Country: None (occurrence: None)
  Receive Date: 20051031
  Receipt Date: 20050729
  Transmission Date: 20060501
  Serious: No
  Sender: FDA-Public Use
  Company Number: 200516631US

PATIENT
  Sex: Male

DRUGS (1)
  1. KETEK [Suspect]
     Dosage: PO
     Route: 048
     Dates: start: 20050714

REACTIONS (2)
  - AGEUSIA [None]
  - PAROSMIA [None]
